FAERS Safety Report 23124519 (Version 1)
Quarter: 2023Q4

REPORT INFORMATION
  Report Type: Spontaneous
  Country: US (occurrence: None)
  Receive Date: 20231029
  Receipt Date: 20231029
  Transmission Date: 20240109
  Serious: Yes (Disabling)
  Sender: FDA-Public Use
  Company Number: None

PATIENT
  Age: 60 Year
  Sex: Female
  Weight: 90.9 kg

DRUGS (1)
  1. SINGULAIR [Suspect]
     Active Substance: MONTELUKAST SODIUM
     Indication: Hypersensitivity
     Dosage: OTHER QUANTITY : 1 TABLET(S);?FREQUENCY : AT BEDTIME;?
     Route: 048
     Dates: start: 20231023, end: 20231024

REACTIONS (7)
  - Dyspnoea [None]
  - Nightmare [None]
  - Ear pain [None]
  - Nasal congestion [None]
  - Nasal discharge discolouration [None]
  - Sinusitis [None]
  - Ear infection [None]

NARRATIVE: CASE EVENT DATE: 20231025
